FAERS Safety Report 12783674 (Version 1)
Quarter: 2016Q3

REPORT INFORMATION
  Report Type: Report from Study
  Country: GR (occurrence: GR)
  Receive Date: 20160927
  Receipt Date: 20160927
  Transmission Date: 20161109
  Serious: Yes (Death, Hospitalization, Other)
  Sender: FDA-Public Use
  Company Number: PHHY2016GR131687

PATIENT
  Age: 67 Year
  Sex: Male

DRUGS (1)
  1. DABRAFENIB [Suspect]
     Active Substance: DABRAFENIB
     Indication: METASTATIC MALIGNANT MELANOMA
     Dosage: UNK
     Route: 065
     Dates: start: 20150409

REACTIONS (9)
  - Pyrexia [Unknown]
  - Skin mass [Unknown]
  - Pruritus [Unknown]
  - Hyperkeratosis [Unknown]
  - Sepsis [Fatal]
  - Pyelonephritis [Unknown]
  - Pulmonary mass [Unknown]
  - Rash maculo-papular [Unknown]
  - Retroperitoneal mass [Unknown]
